FAERS Safety Report 6219094-6 (Version None)
Quarter: 2009Q2

REPORT INFORMATION
  Report Type: 
  Country: None (occurrence: None)
  Receive Date: 20090609
  Receipt Date: 20090528
  Transmission Date: 20091009
  Serious: Yes (Hospitalization)
  Sender: FDA-Public Use
  Company Number: JP-PFIZER INC-2009221811

PATIENT
  Age: 59 Year

DRUGS (2)
  1. SUNITINIB MALATE [Suspect]
     Indication: BREAST CANCER
     Dosage: 37.5 MG, DAILY
     Route: 048
     Dates: start: 20081023
  2. SUNITINIB MALATE [Suspect]
     Dosage: 25 MG, DAILY
     Route: 048
     Dates: start: 20081222, end: 20090521

REACTIONS (1)
  - PLEURAL EFFUSION [None]
